FAERS Safety Report 5223849-4 (Version None)
Quarter: 2007Q1

REPORT INFORMATION
  Report Type: 
  Country: None (occurrence: None)
  Receive Date: 20070130
  Receipt Date: 20070122
  Transmission Date: 20070707
  Serious: Yes (Other)
  Sender: FDA-Public Use
  Company Number: PHNU2006DE03730

PATIENT
  Sex: Male

DRUGS (6)
  1. SANDIMMUNE [Suspect]
     Indication: RENAL TRANSPLANT
     Dosage: 150MG/DAY
     Route: 065
     Dates: start: 20020101
  2. CELLCEPT [Concomitant]
     Indication: RENAL TRANSPLANT
     Dosage: 720 MG/DAY
     Route: 065
  3. DECORTIN-H [Suspect]
     Indication: RENAL TRANSPLANT
     Route: 065
  4. ENABETA COMPACT [Concomitant]
     Dosage: 20MG/DAY
     Route: 065
     Dates: start: 20050101
  5. CARVEDILOL [Concomitant]
     Dosage: UNK, UNK
     Route: 065
  6. PANTOZOL [Concomitant]
     Indication: PROPHYLAXIS
     Dosage: 20 MG, Q48H
     Route: 048
     Dates: start: 20020101

REACTIONS (1)
  - TENDON RUPTURE [None]
